FAERS Safety Report 6930775-9 (Version None)
Quarter: 2010Q3

REPORT INFORMATION
  Report Type: 
  Country: None (occurrence: None)
  Receive Date: 20100817
  Receipt Date: 20100817
  Transmission Date: 20110219
  Serious: Yes (Other)
  Sender: FDA-Public Use
  Company Number: None

PATIENT
  Age: 54 Year
  Sex: Female
  Weight: 72.5755 kg

DRUGS (2)
  1. ARIPIPRAZOLE [Suspect]
     Indication: DEPRESSION
     Dosage: 10 MG QHS PO
     Route: 048
     Dates: start: 20091201, end: 20100808
  2. ARIPIPRAZOLE [Suspect]
     Indication: INSOMNIA
     Dosage: 10 MG QHS PO
     Route: 048
     Dates: start: 20091201, end: 20100808

REACTIONS (1)
  - TARDIVE DYSKINESIA [None]
